FAERS Safety Report 5386259-5 (Version None)
Quarter: 2007Q3

REPORT INFORMATION
  Report Type: 
  Country: None (occurrence: None)
  Receive Date: 20070713
  Receipt Date: 20070703
  Transmission Date: 20080115
  Serious: Yes (Hospitalization)
  Sender: FDA-Public Use
  Company Number: PHBS2007MY11112

PATIENT

DRUGS (1)
  1. CLOZARIL [Suspect]
     Dosage: 200 MG, ONCE/SINGLE
     Route: 048

REACTIONS (4)
  - ACCIDENTAL EXPOSURE [None]
  - DYSPNOEA [None]
  - INTUBATION [None]
  - LIFE SUPPORT [None]
